FAERS Safety Report 23082674 (Version 3)
Quarter: 2023Q4

REPORT INFORMATION
  Report Type: Spontaneous
  Country: JP (occurrence: JP)
  Receive Date: 20231019
  Receipt Date: 20231213
  Transmission Date: 20240110
  Serious: Yes (Hospitalization, Other)
  Sender: FDA-Public Use
  Company Number: JP-ONO-2023JP014468

PATIENT
  Age: 63 Year
  Sex: Female
  Weight: 47 kg

DRUGS (6)
  1. OPDIVO [Suspect]
     Active Substance: NIVOLUMAB
     Indication: Gastric cancer
     Route: 041
     Dates: start: 20221026, end: 20230310
  2. OXALIPLATIN [Suspect]
     Active Substance: OXALIPLATIN
     Indication: Gastric cancer
     Route: 041
     Dates: start: 20221026, end: 20230310
  3. OXALIPLATIN [Suspect]
     Active Substance: OXALIPLATIN
     Dosage: CUMULATIVE DOSAGE: 13220.4 MG
     Route: 041
     Dates: start: 20230414
  4. GIMERACIL\OTERACIL\TEGAFUR [Suspect]
     Active Substance: GIMERACIL\OTERACIL POTASSIUM\TEGAFUR
     Indication: Gastric cancer
     Route: 048
     Dates: start: 20221026, end: 20230324
  5. GIMERACIL\OTERACIL\TEGAFUR [Suspect]
     Active Substance: GIMERACIL\OTERACIL POTASSIUM\TEGAFUR
     Route: 048
     Dates: start: 20230414, end: 20230526
  6. MIYA-BM [Concomitant]
     Active Substance: CLOSTRIDIUM BUTYRICUM SPORES STRAIN M-55
     Indication: Prophylaxis
     Route: 048
     Dates: start: 20221007

REACTIONS (6)
  - Immune-mediated hepatitis [Unknown]
  - Hydronephrosis [Recovered/Resolved]
  - Calculus urinary [Unknown]
  - Hepatic function abnormal [Recovering/Resolving]
  - Fall [Unknown]
  - Neoplasm [Unknown]

NARRATIVE: CASE EVENT DATE: 20221216
